FAERS Safety Report 10310922 (Version 1)
Quarter: 2014Q3

REPORT INFORMATION
  Report Type: Spontaneous
  Country: US (occurrence: US)
  Receive Date: 20140717
  Receipt Date: 20140717
  Transmission Date: 20150326
  Serious: No
  Sender: FDA-Public Use
  Company Number: US-BAYER-2014-107688

PATIENT
  Age: 21 Year
  Sex: Female

DRUGS (1)
  1. MIRENA [Suspect]
     Active Substance: LEVONORGESTREL
     Indication: CONTRACEPTION
     Dosage: 20 MCG/24HR, CONT
     Route: 015
     Dates: start: 20120315

REACTIONS (9)
  - Abdominal pain [None]
  - Breast tenderness [None]
  - Abdominal discomfort [None]
  - Back pain [None]
  - Sleep disorder [None]
  - Acne [None]
  - Amenorrhoea [None]
  - Feeling abnormal [None]
  - Vomiting [None]
